FAERS Safety Report 22068955 (Version 1)
Quarter: 2023Q1

REPORT INFORMATION
  Report Type: Spontaneous
  Country: FR (occurrence: FR)
  Receive Date: 20230307
  Receipt Date: 20230307
  Transmission Date: 20230417
  Serious: Yes (Hospitalization)
  Sender: FDA-Public Use
  Company Number: None

PATIENT
  Age: 57 Year
  Sex: Female

DRUGS (1)
  1. DICLOFENAC [Interacting]
     Active Substance: DICLOFENAC
     Indication: Back pain
     Dosage: UNK (NON PRECISEE)
     Route: 048

REACTIONS (5)
  - Confusional state [Recovered/Resolved]
  - Tremor [Recovered/Resolved]
  - Renal impairment [Recovered/Resolved]
  - Hypotension [Recovered/Resolved]
  - Accidental overdose [Recovering/Resolving]

NARRATIVE: CASE EVENT DATE: 20230210
